FAERS Safety Report 5251223-3 (Version None)
Quarter: 2007Q1

REPORT INFORMATION
  Report Type: 
  Country: None (occurrence: None)
  Receive Date: 20070228
  Receipt Date: 20070213
  Transmission Date: 20070707
  Serious: No
  Sender: FDA-Public Use
  Company Number: US-GLAXOSMITHKLINE-A0630948A

PATIENT
  Age: 17 Year
  Sex: Male
  Weight: 97.7 kg

DRUGS (2)
  1. LAMICTAL [Suspect]
     Indication: BIPOLAR DISORDER
     Dosage: 25MG PER DAY
     Route: 048
  2. SEROQUEL [Concomitant]
     Dosage: 50MG AT NIGHT

REACTIONS (2)
  - RASH [None]
  - URTICARIA [None]
